FAERS Safety Report 8558641-6 (Version None)
Quarter: 2012Q3

REPORT INFORMATION
  Report Type: 
  Country: None (occurrence: None)
  Receive Date: 20120801
  Receipt Date: 20120725
  Transmission Date: 20120928
  Serious: Yes (Hospitalization)
  Sender: FDA-Public Use
  Company Number: JP-ROCHE-796330

PATIENT
  Sex: Male

DRUGS (4)
  1. ACTEMRA [Suspect]
     Indication: RHEUMATOID ARTHRITIS
     Route: 041
     Dates: start: 20090202, end: 20100728
  2. ACTEMRA [Suspect]
     Route: 041
     Dates: start: 20101108, end: 20111005
  3. METHOTREXATE SODIUM [Suspect]
     Indication: PRODUCT USED FOR UNKNOWN INDICATION
  4. CELECOXIB [Concomitant]
     Dosage: FORM: PRE ORAL AGENT
     Route: 048

REACTIONS (4)
  - BRONCHOPULMONARY ASPERGILLOSIS [None]
  - INFECTIOUS PLEURAL EFFUSION [None]
  - PNEUMONIA [None]
  - PULMONARY FISTULA [None]
